FAERS Safety Report 16347394 (Version 6)
Quarter: 2020Q2

REPORT INFORMATION
  Report Type: Spontaneous
  Country: FR (occurrence: FR)
  Receive Date: 20190523
  Receipt Date: 20200610
  Transmission Date: 20200713
  Serious: Yes (Disabling, Other)
  Sender: FDA-Public Use
  Company Number: FR-SA-2019SA139485

PATIENT

DRUGS (6)
  1. XANAX [Concomitant]
     Active Substance: ALPRAZOLAM
  2. AUBAGIO [Suspect]
     Active Substance: TERIFLUNOMIDE
     Indication: MULTIPLE SCLEROSIS
     Dosage: 14 MG
     Route: 048
     Dates: start: 201502, end: 20181006
  3. METEOSPASMYL [ALVERINE CITRATE;DL-METHIONINE] [Concomitant]
     Active Substance: ALVERINE CITRATE\RACEMETHIONINE
     Indication: IRRITABLE BOWEL SYNDROME
  4. PROTHIADEN [Concomitant]
     Active Substance: DOTHIEPIN HYDROCHLORIDE
     Indication: DEPRESSION
  5. SMECTA [Concomitant]
     Active Substance: MONTMORILLONITE
     Indication: FAECES SOFT
  6. CLOMIPRAMINE [CLOMIPRAMINE HYDROCHLORIDE] [Concomitant]
     Active Substance: CLOMIPRAMINE HYDROCHLORIDE

REACTIONS (56)
  - Sleep disorder [Recovered/Resolved]
  - Anxiety [Recovered/Resolved]
  - Neutrophil count increased [Recovered/Resolved]
  - Burnout syndrome [Unknown]
  - Vomiting [Unknown]
  - Fatigue [Unknown]
  - Haematochezia [Recovered/Resolved]
  - Progressive multiple sclerosis [Unknown]
  - Occipital neuralgia [Unknown]
  - Abnormal faeces [Unknown]
  - Aphasia [Unknown]
  - Alopecia [Recovering/Resolving]
  - Arthralgia [Unknown]
  - Loss of consciousness [Unknown]
  - Fatigue [Recovered/Resolved]
  - Fibromyalgia [Unknown]
  - Disturbance in attention [Unknown]
  - Hypoaesthesia [Unknown]
  - Malaise [Recovered/Resolved]
  - Asthenia [Unknown]
  - Blood pressure decreased [Recovered/Resolved]
  - Balance disorder [Unknown]
  - Condition aggravated [Unknown]
  - Memory impairment [Unknown]
  - Diarrhoea [Recovered/Resolved]
  - Hypertension [Not Recovered/Not Resolved]
  - Loss of personal independence in daily activities [Unknown]
  - Haemorrhoids [Unknown]
  - Rectal haemorrhage [Unknown]
  - Mental impairment [Recovering/Resolving]
  - Dysstasia [Recovered/Resolved]
  - Pain [Recovering/Resolving]
  - Abdominal pain [Recovered/Resolved]
  - Feeling drunk [Recovered/Resolved]
  - Dizziness [Recovered/Resolved]
  - Migraine [Recovered/Resolved]
  - Parotid gland enlargement [Unknown]
  - Joint effusion [Unknown]
  - Cerebellar ataxia [Unknown]
  - Limb discomfort [Recovering/Resolving]
  - Oral herpes [Recovered/Resolved]
  - Nausea [Recovered/Resolved]
  - Palpitations [Recovered/Resolved]
  - Disability [Not Recovered/Not Resolved]
  - Tendonitis [Unknown]
  - Pain [Unknown]
  - Discomfort [Recovering/Resolving]
  - Asthenia [Recovering/Resolving]
  - Abdominal pain upper [Recovered/Resolved]
  - Arthralgia [Unknown]
  - Confusional state [Unknown]
  - Cognitive disorder [Recovered/Resolved]
  - Hyperhidrosis [Recovered/Resolved]
  - Hunger [Recovered/Resolved]
  - Weight increased [Recovered/Resolved]
  - Condition aggravated [Recovering/Resolving]

NARRATIVE: CASE EVENT DATE: 201507
